FAERS Safety Report 4679653-9 (Version None)
Quarter: 2005Q2

REPORT INFORMATION
  Report Type: 
  Country: None (occurrence: None)
  Receive Date: 20050602
  Receipt Date: 20050506
  Transmission Date: 20051028
  Serious: Yes (Death, Hospitalization)
  Sender: FDA-Public Use
  Company Number: HQWYE261225APR05

PATIENT
  Age: 66 Year
  Sex: Female

DRUGS (4)
  1. ENBREL [Suspect]
     Indication: RHEUMATOID ARTHRITIS
     Dosage: DOSE AND FREQUENCY NOT SPECIFIED
     Route: 058
     Dates: start: 20050407
  2. LOSARTAN POTASSIUM [Concomitant]
     Dosage: DOSE AND FREQUENCY NOT SPECIFIED
     Route: 048
  3. OMEPRAZOLE [Concomitant]
     Dosage: DOSE AND FREQUENCY NOT SPECIFIED
     Route: 048
  4. PREDNISOLONE [Concomitant]
     Dosage: DOSE AND FREQUENCY NOT SPECIFIED
     Route: 048

REACTIONS (8)
  - CONDITION AGGRAVATED [None]
  - DIZZINESS [None]
  - FALL [None]
  - HALLUCINATION [None]
  - HERPES ZOSTER [None]
  - PYELONEPHRITIS [None]
  - RENAL FAILURE CHRONIC [None]
  - WHITE BLOOD CELL COUNT INCREASED [None]
